FAERS Safety Report 18431102 (Version 1)
Quarter: 2020Q4

REPORT INFORMATION
  Report Type: Spontaneous
  Country: US (occurrence: US)
  Receive Date: 20201027
  Receipt Date: 20201027
  Transmission Date: 20210114
  Serious: Yes (Hospitalization)
  Sender: FDA-Public Use
  Company Number: None

PATIENT
  Sex: Female

DRUGS (7)
  1. ALPRAZOLAM. [Concomitant]
     Active Substance: ALPRAZOLAM
  2. BENLYSTA [Suspect]
     Active Substance: BELIMUMAB
     Route: 058
  3. CYANOCOBALAM [Concomitant]
     Active Substance: CYANOCOBALAMIN
  4. BACLOFEN. [Concomitant]
     Active Substance: BACLOFEN
  5. VIT D [Concomitant]
     Active Substance: VITAMIN D NOS
  6. PREDNISONE. [Concomitant]
     Active Substance: PREDNISONE
  7. QUETIAPINE. [Concomitant]
     Active Substance: QUETIAPINE

REACTIONS (3)
  - Stomatitis [None]
  - Arthralgia [None]
  - Skin ulcer [None]
